FAERS Safety Report 20660048 (Version 1)
Quarter: 2022Q1

REPORT INFORMATION
  Report Type: Spontaneous
  Country: US (occurrence: US)
  Receive Date: 20220331
  Receipt Date: 20220331
  Transmission Date: 20220423
  Serious: No
  Sender: FDA-Public Use
  Company Number: US-SA-SAC20220329001692

PATIENT
  Age: 58 Year
  Sex: Female

DRUGS (24)
  1. DUPIXENT [Suspect]
     Active Substance: DUPILUMAB
     Indication: Asthma
     Dosage: 300 MG, QOW
     Route: 058
     Dates: start: 20210824
  2. ADVAIR HFA [Concomitant]
     Active Substance: FLUTICASONE PROPIONATE\SALMETEROL XINAFOATE
     Indication: Asthma
     Dosage: 500/50
  3. ALBUTEROL SULFATE [Concomitant]
     Active Substance: ALBUTEROL SULFATE
     Indication: Asthma
  4. ALBUTEROL SULFATE [Concomitant]
     Active Substance: ALBUTEROL SULFATE
     Indication: Asthma
  5. AZITHROMYCIN [Concomitant]
     Active Substance: AZITHROMYCIN
  6. BACTRIM DS [Concomitant]
     Active Substance: SULFAMETHOXAZOLE\TRIMETHOPRIM
     Dosage: 300-160
  7. COMBIVENT [Concomitant]
     Active Substance: ALBUTEROL SULFATE\IPRATROPIUM BROMIDE
     Indication: Asthma
  8. DIAZEPAM [Concomitant]
     Active Substance: DIAZEPAM
     Dosage: 60MG
  9. DILTIAZEM [Concomitant]
     Active Substance: DILTIAZEM
     Indication: Hypertension
     Dosage: 03MG
  10. EPIPEN [Concomitant]
     Active Substance: EPINEPHRINE
     Dosage: 30MG
  11. FASENRA [Concomitant]
     Active Substance: BENRALIZUMAB
     Indication: Asthma
     Dosage: 30MG/ML
  12. ACETAMINOPHEN\HYDROCODONE [Concomitant]
     Active Substance: ACETAMINOPHEN\HYDROCODONE
  13. LIDOCAINE [Concomitant]
     Active Substance: LIDOCAINE
  14. HYDROCHLOROTHIAZIDE\LISINOPRIL [Concomitant]
     Active Substance: HYDROCHLOROTHIAZIDE\LISINOPRIL
     Indication: Hypertension
     Dosage: 20-12.5
  15. MELOXICAM [Concomitant]
     Active Substance: MELOXICAM
  16. MONTELUKAST SODIUM [Concomitant]
     Active Substance: MONTELUKAST SODIUM
     Indication: Asthma
  17. ACETAMINOPHEN\OXYCODONE HYDROCHLORIDE [Concomitant]
     Active Substance: ACETAMINOPHEN\OXYCODONE HYDROCHLORIDE
     Dosage: 7.5-325
  18. PRAMIPEXOLE [Concomitant]
     Active Substance: PRAMIPEXOLE
  19. PREDNISONE [Concomitant]
     Active Substance: PREDNISONE
     Indication: Asthma
  20. PREDNISONE [Concomitant]
     Active Substance: PREDNISONE
     Indication: Dermatitis contact
  21. SAVELLA [Concomitant]
     Active Substance: MILNACIPRAN HYDROCHLORIDE
  22. TIZANIDINE [Concomitant]
     Active Substance: TIZANIDINE
     Dosage: 50MG
  23. TRIAMCINOLONE [Concomitant]
     Active Substance: TRIAMCINOLONE
     Dosage: 50MG
  24. XOLAIR [Concomitant]
     Active Substance: OMALIZUMAB
     Indication: Asthma

REACTIONS (2)
  - Impaired quality of life [Unknown]
  - Asthma [Unknown]
